FAERS Safety Report 21517032 (Version 1)
Quarter: 2022Q4

REPORT INFORMATION
  Report Type: Spontaneous
  Country: US (occurrence: US)
  Receive Date: 20221028
  Receipt Date: 20221028
  Transmission Date: 20230112
  Serious: No
  Sender: FDA-Public Use
  Company Number: US-JNJFOC-20221037113

PATIENT

DRUGS (1)
  1. PONVORY [Suspect]
     Active Substance: PONESIMOD
     Indication: Product used for unknown indication
     Route: 048

REACTIONS (1)
  - Alanine aminotransferase increased [Unknown]
